FAERS Safety Report 10264376 (Version 1)
Quarter: 2014Q2

REPORT INFORMATION
  Report Type: Spontaneous
  Country: DE (occurrence: DE)
  Receive Date: 20140627
  Receipt Date: 20140627
  Transmission Date: 20141212
  Serious: Yes (Other)
  Sender: FDA-Public Use
  Company Number: DE-SUN PHARMACEUTICAL INDUSTRIES LTD-2014SUN01389

PATIENT
  Age: 29 Year
  Sex: Female

DRUGS (7)
  1. OLANZAPINE 20 MG TABLETS [Suspect]
     Indication: SCHIZOPHRENIA
     Dosage: 20 MG, OD
     Route: 065
  2. CLOZAPINE [Suspect]
     Indication: SCHIZOPHRENIA
     Dosage: 250 MG/DAY (50MG-0-200MG-0)
     Route: 065
  3. CLOZAPINE [Suspect]
     Dosage: 200 MG/DAY
     Route: 065
  4. CLOZAPINE [Suspect]
     Dosage: 150 MG/DAY
     Route: 065
  5. FLUVOXAMINE [Suspect]
     Indication: SCHIZOPHRENIA
     Dosage: 25 MG, OD
     Route: 065
  6. FLUVOXAMINE [Suspect]
     Dosage: 50 MG, OD
     Route: 065
  7. FLUVOXAMINE [Suspect]
     Dosage: 25 MG, OD
     Route: 065

REACTIONS (4)
  - Obsessive-compulsive disorder [Recovered/Resolved]
  - Vision blurred [Recovered/Resolved]
  - Constipation [Recovered/Resolved]
  - Dry mouth [Recovered/Resolved]
